FAERS Safety Report 6491908-4 (Version None)
Quarter: 2009Q4

REPORT INFORMATION
  Report Type: 
  Country: None (occurrence: None)
  Receive Date: 20091125
  Receipt Date: 20090901
  Transmission Date: 20100525
  Serious: Yes (Other)
  Sender: FDA-Public Use
  Company Number: 2009BH013036

PATIENT
  Age: 62 Year
  Sex: Male

DRUGS (26)
  1. DIANEAL [Suspect]
     Indication: PERITONEAL DIALYSIS
     Dosage: 17 L ; EVERY DAY ; IP
     Route: 033
     Dates: start: 20090709
  2. DIANEAL [Suspect]
     Indication: PERITONEAL DIALYSIS
     Dosage: ; UNK ; IP
     Route: 033
  3. VANCOMYCIN [Concomitant]
  4. POTASSIUM CHLORIDE [Concomitant]
  5. TRILIPIX [Concomitant]
  6. FOSRENOL [Concomitant]
  7. HECTEROL [Concomitant]
  8. DIGOXIN [Concomitant]
  9. PHOSLO [Concomitant]
  10. TUMS [Concomitant]
  11. EPOETIN [Concomitant]
  12. LANTUS [Concomitant]
  13. SENSIPAR [Concomitant]
  14. SENOKOT [Concomitant]
  15. LOPRESSOR [Concomitant]
  16. NEPHROCAPS [Concomitant]
  17. ALLOPURINOL [Concomitant]
  18. INSULIN [Concomitant]
  19. NEURONTIN [Concomitant]
  20. AVODART [Concomitant]
  21. LOPERAMIDE [Concomitant]
  22. SIMVASTATIN [Concomitant]
  23. PLETAL [Concomitant]
  24. ASPIRIN [Concomitant]
  25. WARFARIN [Concomitant]
  26. GENTAMICIN [Concomitant]

REACTIONS (3)
  - DIARRHOEA [None]
  - PERITONEAL DIALYSIS COMPLICATION [None]
  - PERITONITIS BACTERIAL [None]
